FAERS Safety Report 8962867 (Version 2)
Quarter: 2013Q1

REPORT INFORMATION
  Report Type: Spontaneous
  Country: US (occurrence: US)
  Receive Date: 20121213
  Receipt Date: 20130314
  Transmission Date: 20140127
  Serious: No
  Sender: FDA-Public Use
  Company Number: US-009507513-1209USA012056

PATIENT
  Age: 15 Year
  Sex: Female

DRUGS (2)
  1. NEXPLANON [Suspect]
     Dosage: 1 DF, UNK
     Route: 059
     Dates: start: 20120926, end: 20120926
  2. NEXPLANON [Suspect]
     Dosage: 1 DF, UNK
     Route: 059
     Dates: start: 20120926

REACTIONS (2)
  - Complication of device insertion [Unknown]
  - No adverse event [Unknown]
